FAERS Safety Report 17001610 (Version 2)
Quarter: 2019Q4

REPORT INFORMATION
  Report Type: Spontaneous
  Country: US (occurrence: US)
  Receive Date: 20191106
  Receipt Date: 20191119
  Transmission Date: 20200122
  Serious: Yes (Life-Threatening, Hospitalization, Other)
  Sender: FDA-Public Use
  Company Number: US-VISTAPHARM, INC.-VER201910-001203

PATIENT
  Age: 3 Year
  Sex: Male

DRUGS (1)
  1. OXYCODONE [Suspect]
     Active Substance: OXYCODONE
     Indication: PRODUCT USED FOR UNKNOWN INDICATION
     Dosage: UNKNOWN

REACTIONS (4)
  - Drug screen positive [Unknown]
  - Encephalitis [Recovering/Resolving]
  - Toxic leukoencephalopathy [Recovering/Resolving]
  - Multiple organ dysfunction syndrome [Recovering/Resolving]
